FAERS Safety Report 6262519-0 (Version None)
Quarter: 2009Q3

REPORT INFORMATION
  Report Type: 
  Country: None (occurrence: None)
  Receive Date: 20090709
  Receipt Date: 20090701
  Transmission Date: 20100115
  Serious: Yes (Hospitalization, Other)
  Sender: FDA-Public Use
  Company Number: FR-ELI_LILLY_AND_COMPANY-FR200907000025

PATIENT
  Sex: Male

DRUGS (7)
  1. HUMALOG [Suspect]
     Route: 058
     Dates: start: 20090319
  2. NOVOMIX30 [Concomitant]
     Dosage: 100 IU, UNK
     Route: 042
     Dates: start: 20081101, end: 20090201
  3. NOVOMIX30 [Concomitant]
     Dosage: 100 IU, UNK
     Route: 042
     Dates: start: 20090306, end: 20090318
  4. STAGID [Concomitant]
  5. IRBESARTAN [Concomitant]
  6. ASPEGIC 1000 [Concomitant]
  7. FRACTAL [Concomitant]

REACTIONS (8)
  - ACUTE MYOCARDIAL INFARCTION [None]
  - ATRIAL FIBRILLATION [None]
  - BURNING SENSATION [None]
  - CHEST PAIN [None]
  - DYSPNOEA [None]
  - HYPOGLYCAEMIA [None]
  - HYPOTENSION [None]
  - MALAISE [None]
